FAERS Safety Report 14820095 (Version 1)
Quarter: 2018Q2

REPORT INFORMATION
  Report Type: Spontaneous
  Country: US (occurrence: US)
  Receive Date: 20180427
  Receipt Date: 20180427
  Transmission Date: 20180711
  Serious: Yes (Death, Hospitalization)
  Sender: FDA-Public Use
  Company Number: US-LPDUSPRD-20180649

PATIENT
  Age: 49 Year
  Sex: Female

DRUGS (20)
  1. SERTRALINE [Concomitant]
     Active Substance: SERTRALINE HYDROCHLORIDE
     Dosage: 100 MG DAILY
     Route: 065
  2. DILTIAZEM. [Concomitant]
     Active Substance: DILTIAZEM
     Dosage: UNKNOWN
     Route: 042
  3. VANCOMYCIN [Concomitant]
     Active Substance: VANCOMYCIN
     Dosage: UNKNOWN
     Route: 065
  4. DOXYCYCLINE. [Concomitant]
     Active Substance: DOXYCYCLINE
     Dosage: UNKNOWN
     Route: 065
  5. CIPROFLOXACIN. [Concomitant]
     Active Substance: CIPROFLOXACIN
     Dosage: UNKNOWN
     Route: 065
  6. DEPAKENE [Concomitant]
     Active Substance: VALPROIC ACID
     Dosage: 500 MG BID
     Route: 065
  7. AZTREONAM. [Concomitant]
     Active Substance: AZTREONAM
     Dosage: UNKNOWN
     Route: 065
  8. LORAZEPAM. [Concomitant]
     Active Substance: LORAZEPAM
     Dosage: 4 MG
     Route: 042
  9. VALPROIC ACID. [Concomitant]
     Active Substance: VALPROIC ACID
     Dosage: 1250 MG NIGHTLY
     Route: 065
  10. BENZTROPINE. [Concomitant]
     Active Substance: BENZTROPINE
     Dosage: 2 MG BID
     Route: 065
  11. HALOPERIDOL. [Suspect]
     Active Substance: HALOPERIDOL
     Dosage: THERAPEUTIC DOSE
     Route: 065
  12. CLOZAPINE. [Suspect]
     Active Substance: CLOZAPINE
     Dosage: 25 MG NIGHTLY
     Route: 065
  13. CHLORPROMAZINE. [Suspect]
     Active Substance: CHLORPROMAZINE
     Dosage: 50 MG TID
     Route: 065
  14. OLANZAPINE FOR INJECTION (0517-0955-01) [Suspect]
     Active Substance: OLANZAPINE
     Dosage: 10 MG (2 DOSES)
     Route: 030
  15. OLANZAPINE. [Suspect]
     Active Substance: OLANZAPINE
     Dosage: THERAPEUTIC DOSE
     Route: 065
  16. RISPERIDONE. [Suspect]
     Active Substance: RISPERIDONE
     Dosage: 4 MG NIGHTLY
     Route: 065
  17. FLUPHENAZINE [Suspect]
     Active Substance: FLUPHENAZINE
     Dosage: 5 MG DAILY
     Route: 065
  18. DIPHENHYDRAMINE. [Concomitant]
     Active Substance: DIPHENHYDRAMINE
     Dosage: 25 MG (PRN DOSE)
     Route: 042
  19. AMIODARONE [Concomitant]
     Active Substance: AMIODARONE
     Dosage: CONTINUOUS
     Route: 042
  20. RISPERDAL CONSTA [Suspect]
     Active Substance: RISPERIDONE
     Dosage: 50 MG EVERY 2 WEEKS
     Route: 030

REACTIONS (3)
  - Electrocardiogram QT prolonged [Fatal]
  - Torsade de pointes [Fatal]
  - Cardiac arrest [Fatal]
